FAERS Safety Report 5333873-9 (Version None)
Quarter: 2007Q2

REPORT INFORMATION
  Report Type: 
  Country: None (occurrence: None)
  Receive Date: 20070524
  Receipt Date: 20070511
  Transmission Date: 20071010
  Serious: Yes (Hospitalization, Other)
  Sender: FDA-Public Use
  Company Number: US-SHR-US-2007-001456

PATIENT
  Age: 49 Year
  Sex: Female
  Weight: 83.9 kg

DRUGS (3)
  1. BETASERON [Suspect]
     Indication: SECONDARY PROGRESSIVE MULTIPLE SCLEROSIS
     Dosage: 8 MIU, EVERY 2D
     Route: 058
     Dates: start: 20040101, end: 20070126
  2. BETASERON [Suspect]
     Route: 058
     Dates: start: 20070221
  3. AMBIEN [Concomitant]
     Dosage: 10 ML, UNK
     Dates: start: 20040601

REACTIONS (5)
  - INJECTION SITE ERYTHEMA [None]
  - INJECTION SITE REACTION [None]
  - MULTIPLE SCLEROSIS [None]
  - NEUROENDOCRINE TUMOUR [None]
  - PYREXIA [None]
